FAERS Safety Report 15005406 (Version 1)
Quarter: 2018Q2

REPORT INFORMATION
  Report Type: Spontaneous
  Country: GB (occurrence: GB)
  Receive Date: 20180613
  Receipt Date: 20180613
  Transmission Date: 20180711
  Serious: Yes (Hospitalization)
  Sender: FDA-Public Use
  Company Number: GB-TEVA-2018-GB-906410

PATIENT
  Age: 74 Year
  Sex: Male

DRUGS (4)
  1. BENDROFLUMETHIAZIDE [Suspect]
     Active Substance: BENDROFLUMETHIAZIDE
     Dosage: MORNING
     Route: 048
  2. ROTIGOTINE [Concomitant]
     Active Substance: ROTIGOTINE
     Route: 065
  3. FUROSEMIDE. [Suspect]
     Active Substance: FUROSEMIDE
     Dosage: 20 MILLIGRAM DAILY;
     Route: 048
  4. PERINDOPRIL TERT-BUTYLAMINE [Suspect]
     Active Substance: PERINDOPRIL ERBUMINE
     Dosage: 8 MILLIGRAM DAILY;
     Route: 048

REACTIONS (1)
  - Acute kidney injury [Recovered/Resolved]
